FAERS Safety Report 21979242 (Version 1)
Quarter: 2023Q1

REPORT INFORMATION
  Report Type: Spontaneous
  Country: US (occurrence: None)
  Receive Date: 20230209
  Receipt Date: 20230209
  Transmission Date: 20230418
  Serious: Yes (Other)
  Sender: FDA-Public Use
  Company Number: None

PATIENT
  Age: 39 Year
  Sex: Female
  Weight: 76.5 kg

DRUGS (7)
  1. SERTRALINE [Suspect]
     Active Substance: SERTRALINE HYDROCHLORIDE
     Indication: Obsessive-compulsive disorder
     Dosage: FREQUENCY : DAILY;?
     Route: 048
     Dates: start: 20220921, end: 20221130
  2. KLONOPIN [Concomitant]
     Active Substance: CLONAZEPAM
  3. Ubrelevy [Concomitant]
  4. SUMATRIPTAN [Concomitant]
     Active Substance: SUMATRIPTAN
  5. VITAMIN B12 [Concomitant]
     Active Substance: CYANOCOBALAMIN
  6. VITAMIN D [Concomitant]
     Active Substance: VITAMIN D NOS
  7. MULTI-VITAMIN [Concomitant]
     Active Substance: .ALPHA.-TOCOPHEROL ACETATE, DL-\ASCORBIC ACID\CYANOCOBALAMIN\FLUORIDE ION\FOLIC ACID\NIACIN\PYRIDOXI

REACTIONS (6)
  - Product substitution issue [None]
  - Therapeutic product effect decreased [None]
  - Anxiety [None]
  - Obsessive thoughts [None]
  - Bruxism [None]
  - Insurance issue [None]

NARRATIVE: CASE EVENT DATE: 20221130
